FAERS Safety Report 7235727-X (Version None)
Quarter: 2011Q1

REPORT INFORMATION
  Report Type: 
  Country: None (occurrence: None)
  Receive Date: 20110120
  Receipt Date: 20110112
  Transmission Date: 20110831
  Serious: Yes (Other)
  Sender: FDA-Public Use
  Company Number: PHHY2010JP78253

PATIENT
  Age: 3 Year
  Sex: Female

DRUGS (2)
  1. ZADITEN [Suspect]
     Indication: RHINORRHOEA
     Route: 048
  2. TEGRETOL [Concomitant]
     Indication: EPILEPSY
     Dosage: 120 MG, UNK
     Route: 048

REACTIONS (1)
  - CONVULSION [None]
